FAERS Safety Report 8099036-1 (Version None)
Quarter: 2012Q1

REPORT INFORMATION
  Report Type: 
  Country: None (occurrence: None)
  Receive Date: 20120131
  Receipt Date: 20120130
  Transmission Date: 20120608
  Serious: Yes (Hospitalization)
  Sender: FDA-Public Use
  Company Number: JP-EISAI INC-E2020-03688-CLI-JP

PATIENT
  Sex: Male
  Weight: 56 kg

DRUGS (13)
  1. SUCRALFATE [Concomitant]
     Route: 048
     Dates: start: 20090418
  2. ARICEPT [Suspect]
     Dosage: COMMERCIAL ARICEPT 5 MG DAILY
     Route: 048
     Dates: start: 20081114
  3. LASIX [Concomitant]
     Route: 048
     Dates: start: 20090616, end: 20110830
  4. WARFARIN SODIUM [Concomitant]
     Route: 048
     Dates: start: 20070511, end: 20110830
  5. MEXITIL [Concomitant]
     Route: 048
     Dates: start: 20070511
  6. BISOPROLOL FUMARATE [Concomitant]
     Route: 048
  7. TORSEMIDE [Concomitant]
  8. TANATRIL [Concomitant]
     Route: 048
     Dates: start: 20090909
  9. ARICEPT [Suspect]
     Indication: DEMENTIA ALZHEIMER'S TYPE
     Route: 048
     Dates: start: 20080318, end: 20081113
  10. TORSEMIDE [Concomitant]
     Indication: ATRIAL FIBRILLATION
     Route: 048
     Dates: start: 20100420
  11. RABEPRAZOLE SODIUM [Concomitant]
     Route: 048
     Dates: start: 20090418
  12. PLETAL [Concomitant]
     Route: 048
     Dates: start: 20070511, end: 20110830
  13. PRADAXA [Concomitant]
     Indication: ATRIAL FIBRILLATION
     Route: 048
     Dates: start: 20110301

REACTIONS (2)
  - EYE MOVEMENT DISORDER [None]
  - ANAEMIA [None]
